FAERS Safety Report 21540096 (Version 1)
Quarter: 2022Q4

REPORT INFORMATION
  Report Type: Other
  Country: US (occurrence: None)
  Receive Date: 20221102
  Receipt Date: 20221102
  Transmission Date: 20230112
  Serious: Yes (Hospitalization)
  Sender: FDA-Public Use
  Company Number: US-ROCHE-3205687

PATIENT
  Age: 62 Year
  Sex: Female
  Weight: 56.750 kg

DRUGS (11)
  1. OCREVUS [Suspect]
     Active Substance: OCRELIZUMAB
     Indication: Relapsing-remitting multiple sclerosis
     Route: 042
  2. OCREVUS [Suspect]
     Active Substance: OCRELIZUMAB
     Route: 042
  3. SULFASALAZINE [Concomitant]
     Active Substance: SULFASALAZINE
  4. AMANTADINE [Concomitant]
     Active Substance: AMANTADINE
  5. BACLOFEN [Concomitant]
     Active Substance: BACLOFEN
  6. GABAPENTIN [Concomitant]
     Active Substance: GABAPENTIN
  7. SINGULAIR [Concomitant]
     Active Substance: MONTELUKAST SODIUM
  8. XANAX [Concomitant]
     Active Substance: ALPRAZOLAM
  9. VIVELLE-DOT [Concomitant]
     Active Substance: ESTRADIOL
  10. VENTOLIN [Concomitant]
     Active Substance: ALBUTEROL SULFATE
  11. TRAMADOL [Concomitant]
     Active Substance: TRAMADOL

REACTIONS (2)
  - COVID-19 [Recovered/Resolved]
  - Chest pain [Not Recovered/Not Resolved]

NARRATIVE: CASE EVENT DATE: 20211226
